FAERS Safety Report 9382006 (Version 2)
Quarter: 2013Q3

REPORT INFORMATION
  Report Type: Spontaneous
  Country: US (occurrence: US)
  Receive Date: 20130703
  Receipt Date: 20130802
  Transmission Date: 20140515
  Serious: Yes (Hospitalization)
  Sender: FDA-Public Use
  Company Number: US-GILEAD-2013-0078441

PATIENT
  Sex: Male

DRUGS (2)
  1. LETAIRIS [Suspect]
     Indication: PULMONARY VALVE INCOMPETENCE
     Dosage: 10 MG, QD
     Dates: start: 20120209
  2. LETAIRIS [Suspect]
     Indication: PULMONARY HYPERTENSION

REACTIONS (4)
  - Blood glucose decreased [Unknown]
  - Malaise [Unknown]
  - Loss of consciousness [Unknown]
  - Pruritus [Unknown]
